FAERS Safety Report 17452270 (Version 1)
Quarter: 2020Q1

REPORT INFORMATION
  Report Type: Spontaneous
  Country: TR (occurrence: TR)
  Receive Date: 20200224
  Receipt Date: 20200224
  Transmission Date: 20200409
  Serious: Yes (Other)
  Sender: FDA-Public Use
  Company Number: TR-PRAGMA PHARMACEUTICALS, LLC-2020PRG00014

PATIENT

DRUGS (2)
  1. AMOXICILLIN-CLAVULANATE [Suspect]
     Active Substance: AMOXICILLIN\CLAVULANIC ACID
     Dosage: 40 MG/KG, 1X/DAY (DPT)
     Route: 065
  2. AMOXICILLIN-CLAVULANATE [Suspect]
     Active Substance: AMOXICILLIN\CLAVULANIC ACID
     Dosage: UNK
     Route: 065

REACTIONS (1)
  - Angioedema [Unknown]
